FAERS Safety Report 8940037 (Version 7)
Quarter: 2013Q3

REPORT INFORMATION
  Report Type: Spontaneous
  Country: US (occurrence: US)
  Receive Date: 20121130
  Receipt Date: 20130718
  Transmission Date: 20140515
  Serious: Yes (Hospitalization, Other)
  Sender: FDA-Public Use
  Company Number: US-009507513-1206USA05070

PATIENT
  Sex: Female
  Weight: 52.15 kg

DRUGS (13)
  1. FOSAMAX [Suspect]
     Indication: OSTEOPOROSIS
     Dosage: 70 MG, UNK
     Route: 048
     Dates: start: 20030916, end: 20041110
  2. FOSAMAX [Suspect]
     Dosage: 70 MG, UNK
     Route: 048
     Dates: start: 20080213, end: 20080618
  3. FOSAMAX [Suspect]
     Dosage: 70 UNK, UNK
     Route: 048
     Dates: start: 20011128
  4. FOSAMAX [Suspect]
     Indication: OSTEOPOROSIS
     Dosage: 70 MG, UNK
     Route: 048
     Dates: start: 20080916, end: 20081211
  5. VITAMIN A [Concomitant]
     Dosage: 3100 IU, UNK
     Dates: start: 2002
  6. CHOLECALCIFEROL [Concomitant]
     Dosage: 500 IU, UNK
     Dates: start: 2002
  7. CYANOCOBALAMIN [Concomitant]
     Dosage: 500 MG, UNK
     Dates: start: 2002
  8. PYRIDOXINE [Concomitant]
     Dosage: 100 MG, UNK
     Dates: start: 2002
  9. CALCIUM (UNSPECIFIED) [Concomitant]
     Dosage: 1200 IU, UNK
     Dates: start: 2002
  10. BENICAR [Concomitant]
     Indication: HYPERTENSION
  11. GLUCOTROL XL [Concomitant]
     Indication: DIABETES MELLITUS
     Dosage: 5 MG, BID
     Route: 048
  12. INSULIN [Concomitant]
  13. LIPITOR [Concomitant]
     Dosage: 40 MG, QD

REACTIONS (43)
  - Femur fracture [Unknown]
  - Intramedullary rod insertion [Recovered/Resolved]
  - Tibia fracture [Unknown]
  - Fibula fracture [Unknown]
  - Femur fracture [Unknown]
  - Femur fracture [Unknown]
  - Humerus fracture [Unknown]
  - Fracture debridement [Unknown]
  - Intramedullary rod insertion [Unknown]
  - Fall [Unknown]
  - Fall [Unknown]
  - Loss of consciousness [Recovered/Resolved]
  - Open reduction of fracture [Unknown]
  - Mastectomy [Unknown]
  - Carotid endarterectomy [Unknown]
  - Medical device removal [Unknown]
  - Atrial fibrillation [Unknown]
  - Pulmonary arterial hypertension [Unknown]
  - Hypothyroidism [Unknown]
  - Arteriosclerosis coronary artery [Unknown]
  - Peripheral vascular disorder [Unknown]
  - Carotid artery stenosis [Unknown]
  - Anaemia postoperative [Unknown]
  - Thrombocytopenia [Unknown]
  - Heart valve replacement [Unknown]
  - Aphasia [Unknown]
  - Gastrooesophageal reflux disease [Unknown]
  - Hyperparathyroidism [Unknown]
  - Radius fracture [Unknown]
  - Bone atrophy [Unknown]
  - Upper limb fracture [Unknown]
  - Lower limb fracture [Unknown]
  - Osteopenia [Unknown]
  - Hypotension [Unknown]
  - Arthropathy [Unknown]
  - Syncope [Unknown]
  - Impaired healing [Unknown]
  - Ulna fracture [Unknown]
  - External fixation of fracture [Unknown]
  - Impaired healing [Unknown]
  - Pathological fracture [Unknown]
  - Drug intolerance [Unknown]
  - Nausea [Unknown]
